FAERS Safety Report 9769370 (Version 3)
Quarter: 2014Q1

REPORT INFORMATION
  Report Type: Report from Study
  Country: US (occurrence: US)
  Receive Date: 20131218
  Receipt Date: 20140117
  Transmission Date: 20141002
  Serious: Yes (Other)
  Sender: FDA-Public Use
  Company Number: US-ASTELLAS-2013US013078

PATIENT
  Sex: Female

DRUGS (11)
  1. ERLOTINIB TABLET [Suspect]
     Indication: LUNG NEOPLASM MALIGNANT
     Dosage: 100 MG, UID/QD
     Route: 048
     Dates: start: 20131118
  2. VERAPAMIL                          /00014302/ [Concomitant]
     Indication: HYPERTENSION
     Dosage: 240 MG, UID/QD
     Route: 048
  3. DIOVAN [Concomitant]
     Indication: HYPERTENSION
     Dosage: 320 MG, UID/QD
     Route: 048
  4. LEVALBUTEROL HYDROCHLORIDE [Concomitant]
     Indication: PRODUCT USED FOR UNKNOWN INDICATION
     Dosage: UNK
     Route: 065
  5. VALIUM                             /00017001/ [Concomitant]
     Indication: ANXIETY
     Dosage: 5 MG, PRN
     Route: 048
  6. TRAZODONE [Concomitant]
     Indication: PRODUCT USED FOR UNKNOWN INDICATION
     Dosage: 50 MG, PRN
     Route: 048
  7. LOVAZA [Concomitant]
     Indication: PRODUCT USED FOR UNKNOWN INDICATION
     Dosage: 1 DF, UID/QD
     Route: 065
  8. RANITIDINE [Concomitant]
     Indication: PRODUCT USED FOR UNKNOWN INDICATION
     Dosage: 75 MG, UNKNOWN/D
     Route: 065
  9. XARELTO [Concomitant]
     Indication: ANTICOAGULANT THERAPY
     Dosage: 100 MG, UNKNOWN/D
     Route: 065
  10. CENTRUM                            /02217401/ [Concomitant]
     Indication: PRODUCT USED FOR UNKNOWN INDICATION
     Dosage: UNK
     Route: 065
  11. BIOTIN [Concomitant]
     Indication: PRODUCT USED FOR UNKNOWN INDICATION
     Dosage: UNK
     Route: 065

REACTIONS (28)
  - Incorrect dose administered [Unknown]
  - Deafness [Unknown]
  - Wheezing [Unknown]
  - Visual acuity reduced [Unknown]
  - Dyspnoea [Unknown]
  - Dyspnoea [Unknown]
  - Oral herpes [Unknown]
  - Epistaxis [Unknown]
  - Vertigo [Unknown]
  - Chills [Unknown]
  - Nail hypertrophy [Unknown]
  - Depression [Unknown]
  - Pyrexia [Unknown]
  - Flatulence [Unknown]
  - Asthenia [Unknown]
  - Fatigue [Unknown]
  - Eye pruritus [Unknown]
  - Dry skin [Unknown]
  - Rash [Unknown]
  - Oral mucosal blistering [Unknown]
  - Blister [Unknown]
  - Nasal discomfort [Unknown]
  - Pruritus [Unknown]
  - Dry skin [Unknown]
  - Diarrhoea [Unknown]
  - Decreased appetite [Unknown]
  - Weight decreased [Unknown]
  - Cough [Unknown]
